FAERS Safety Report 25059298 (Version 1)
Quarter: 2025Q1

REPORT INFORMATION
  Report Type: Spontaneous
  Country: CA (occurrence: CA)
  Receive Date: 20250310
  Receipt Date: 20250310
  Transmission Date: 20250409
  Serious: Yes (Other)
  Sender: MYLAN
  Company Number: CA-MYLANLABS-2025M1019943

PATIENT

DRUGS (4)
  1. LATANOPROST [Suspect]
     Active Substance: LATANOPROST
     Indication: Glaucoma
     Dosage: 2 GTT DROPS, QD (1 EVERY 1 DAYS)
  2. LATANOPROST [Suspect]
     Active Substance: LATANOPROST
     Dosage: 2 GTT DROPS, QD (1 EVERY 1 DAYS)
     Route: 061
  3. LATANOPROST [Suspect]
     Active Substance: LATANOPROST
     Dosage: 2 GTT DROPS, QD (1 EVERY 1 DAYS)
     Route: 061
  4. LATANOPROST [Suspect]
     Active Substance: LATANOPROST
     Dosage: 2 GTT DROPS, QD (1 EVERY 1 DAYS)

REACTIONS (3)
  - Erythema [Recovered/Resolved]
  - Burning sensation [Recovered/Resolved]
  - Eye irritation [Recovered/Resolved]
